FAERS Safety Report 11265597 (Version 3)
Quarter: 2015Q3

REPORT INFORMATION
  Report Type: Spontaneous
  Country: DE (occurrence: DE)
  Receive Date: 20150713
  Receipt Date: 20150729
  Transmission Date: 20151125
  Serious: Yes (Hospitalization, Other)
  Sender: FDA-Public Use
  Company Number: DE-PFIZER INC-2015226379

PATIENT
  Sex: Male
  Weight: 3.6 kg

DRUGS (2)
  1. VENLAFAXINE HCL [Suspect]
     Active Substance: VENLAFAXINE HYDROCHLORIDE
     Dosage: 150 MG, DAILY, IN THE LAST 2 WEEKS OF PREGNANCY
     Route: 064
     Dates: start: 201504, end: 20150427
  2. VENLAFAXINE HCL [Suspect]
     Active Substance: VENLAFAXINE HYDROCHLORIDE
     Indication: BORDERLINE PERSONALITY DISORDER
     Dosage: 75 MG, DAILY, DURING PREGNANCY UNTIL INCREASING DOSE TO 150 MG/D IN LAST 2 GESTATIONAL WEEKS
     Route: 064
     Dates: start: 20140730, end: 201504

REACTIONS (7)
  - Tremor [Recovered/Resolved]
  - Vomiting [Recovered/Resolved]
  - Feeding disorder of infancy or early childhood [Recovered/Resolved]
  - Drug withdrawal syndrome neonatal [Recovered/Resolved]
  - Maternal exposure during pregnancy [Recovered/Resolved]
  - Myoclonus [Recovered/Resolved]
  - Insomnia [Recovered/Resolved]

NARRATIVE: CASE EVENT DATE: 2015
